FAERS Safety Report 6522157-9 (Version None)
Quarter: 2009Q4

REPORT INFORMATION
  Report Type: 
  Country: None (occurrence: None)
  Receive Date: 20091230
  Receipt Date: 20091217
  Transmission Date: 20100525
  Serious: Yes (Death)
  Sender: FDA-Public Use
  Company Number: GB-GILEAD-E2B_00000460

PATIENT
  Sex: Male

DRUGS (3)
  1. AMBRISENTAN [Suspect]
     Indication: PULMONARY ARTERIAL HYPERTENSION
     Dates: start: 20090626, end: 20090921
  2. WARFARIN SODIUM [Concomitant]
  3. FUROSEMIDE [Concomitant]

REACTIONS (1)
  - MYOCARDIAL INFARCTION [None]
